FAERS Safety Report 14883503 (Version 2)
Quarter: 2018Q2

REPORT INFORMATION
  Report Type: Spontaneous
  Country: US (occurrence: US)
  Receive Date: 20180511
  Receipt Date: 20180608
  Transmission Date: 20180711
  Serious: Yes (Other)
  Sender: FDA-Public Use
  Company Number: US-MYLANLABS-2018M1030570

PATIENT
  Sex: Female
  Weight: 70 kg

DRUGS (1)
  1. EPINEPHRINE. [Suspect]
     Active Substance: EPINEPHRINE
     Indication: ANAPHYLACTIC REACTION
     Dosage: UNK

REACTIONS (4)
  - Injection site discolouration [Not Recovered/Not Resolved]
  - Injection site haemorrhage [Recovered/Resolved]
  - Needle issue [Unknown]
  - Device failure [Unknown]
